FAERS Safety Report 16329739 (Version 2)
Quarter: 2019Q3

REPORT INFORMATION
  Report Type: Spontaneous
  Country: US (occurrence: US)
  Receive Date: 20190520
  Receipt Date: 20190814
  Transmission Date: 20191004
  Serious: No
  Sender: FDA-Public Use
  Company Number: US-HIKMA PHARMACEUTICALS USA INC.-US-H14001-19-02794

PATIENT
  Age: 83 Year
  Sex: Male
  Weight: 96.4 kg

DRUGS (2)
  1. NOREPINEPHRINE BITARTARATE [Suspect]
     Active Substance: NOREPINEPHRINE BITARTRATE
     Dosage: 32MG IN 250ML NORMAL SALINE
     Route: 042
     Dates: start: 20190421
  2. NOREPINEPHRINE BITARTARATE [Suspect]
     Active Substance: NOREPINEPHRINE BITARTRATE
     Indication: PRODUCT USED FOR UNKNOWN INDICATION
     Dosage: 32MG IN 250ML NORMAL SALINE
     Route: 042
     Dates: start: 20190421

REACTIONS (2)
  - Drug ineffective [Recovered/Resolved]
  - Hypotension [Recovered/Resolved]

NARRATIVE: CASE EVENT DATE: 20190421
